FAERS Safety Report 21691040 (Version 1)
Quarter: 2022Q4

REPORT INFORMATION
  Report Type: Spontaneous
  Country: RO (occurrence: RO)
  Receive Date: 20221207
  Receipt Date: 20221207
  Transmission Date: 20230113
  Serious: Yes (Other)
  Sender: FDA-Public Use
  Company Number: RO-SUN PHARMACEUTICAL INDUSTRIES LTD-2022R1-367174

PATIENT
  Age: 35 Year
  Sex: Male

DRUGS (2)
  1. NALTREXONE [Suspect]
     Active Substance: NALTREXONE
     Indication: Psychotic symptom rating scale
     Dosage: 50 MILLIGRAM, QD
     Route: 065
  2. PALIPERIDONE [Suspect]
     Active Substance: PALIPERIDONE
     Indication: Psychotic symptom rating scale
     Dosage: 100 MILLIGRAM, MONTHLY
     Route: 065

REACTIONS (2)
  - Drug use disorder [Unknown]
  - Schizophrenia [Unknown]
